FAERS Safety Report 18010351 (Version 4)
Quarter: 2020Q3

REPORT INFORMATION
  Report Type: Report from Study
  Country: CA (occurrence: CA)
  Receive Date: 20200710
  Receipt Date: 20200721
  Transmission Date: 20201103
  Serious: Yes (Other)
  Sender: FDA-Public Use
  Company Number: CA-PFIZER INC-2020130165

PATIENT
  Age: 43 Year
  Sex: Male

DRUGS (16)
  1. PANTOLOC [Suspect]
     Active Substance: PANTOPRAZOLE SODIUM
     Dosage: UNK
     Route: 065
  2. ENTYVIO [Suspect]
     Active Substance: VEDOLIZUMAB
     Indication: CROHN^S DISEASE
     Dosage: 300 MG, UNK
     Route: 042
     Dates: start: 20200212
  3. KAZANO [Suspect]
     Active Substance: ALOGLIPTIN BENZOATE\METFORMIN HYDROCHLORIDE
     Dosage: UNK
     Route: 065
  4. PANTO [PANTOPRAZOLE SODIUM SESQUIHYDRATE] [Suspect]
     Active Substance: PANTOPRAZOLE SODIUM
     Dosage: UNK
     Route: 042
  5. NESINA [Suspect]
     Active Substance: ALOGLIPTIN BENZOATE
     Dosage: UNK
     Route: 065
  6. DEXILANT [Suspect]
     Active Substance: DEXLANSOPRAZOLE
     Dosage: UNK
     Route: 065
  7. EDARBYCLOR [Suspect]
     Active Substance: AZILSARTAN KAMEDOXOMIL\CHLORTHALIDONE
     Dosage: UNK
     Route: 065
  8. TACHOSIL [Suspect]
     Active Substance: FIBRINOGEN HUMAN\THROMBIN HUMAN
     Dosage: UNK
     Route: 065
  9. ALVESCO [Suspect]
     Active Substance: CICLESONIDE
     Dosage: 3.5 G, UNK
     Route: 065
     Dates: start: 20190909
  10. ENTOCORT [Concomitant]
     Active Substance: BUDESONIDE
     Dosage: 9 MG, UNK
  11. TECTA [Suspect]
     Active Substance: PANTOPRAZOLE MAGNESIUM
     Indication: DYSPEPSIA
     Dosage: 40 MG, 1X/DAY (QD)
     Route: 065
  12. OMNARIS [Suspect]
     Active Substance: CICLESONIDE
     Dosage: UNK
     Route: 065
  13. ULORIC [Suspect]
     Active Substance: FEBUXOSTAT
     Dosage: UNK
     Route: 065
  14. ONDISSOLVE [Suspect]
     Active Substance: ONDANSETRON
     Dosage: UNK
     Route: 065
  15. ENTYVIO [Suspect]
     Active Substance: VEDOLIZUMAB
     Dosage: 300 MG, UNK
     Route: 042
  16. MEZAVANT [Concomitant]
     Active Substance: MESALAMINE
     Dosage: 3.5 G, 1X/DAY (QD)

REACTIONS (3)
  - Crohn^s disease [Unknown]
  - Constipation [Recovering/Resolving]
  - Faecal calprotectin increased [Recovering/Resolving]

NARRATIVE: CASE EVENT DATE: 20200309
